FAERS Safety Report 7698799-4 (Version None)
Quarter: 2011Q3

REPORT INFORMATION
  Report Type: 
  Country: None (occurrence: None)
  Receive Date: 20110818
  Receipt Date: 20110818
  Transmission Date: 20111222
  Serious: No
  Sender: FDA-Public Use
  Company Number: None

PATIENT
  Age: 23 Year
  Sex: Female

DRUGS (2)
  1. ACZONE 5% [Concomitant]
  2. CLINDAMYCIN PHOSPHATE [Suspect]
     Indication: ACNE
     Dosage: 1 APPLICATION QD TP
     Route: 061
     Dates: start: 20090101

REACTIONS (4)
  - APPLICATION SITE IRRITATION [None]
  - APPLICATION SITE PAIN [None]
  - PRODUCT SUBSTITUTION ISSUE [None]
  - APPLICATION SITE ERYTHEMA [None]
